FAERS Safety Report 6013285-5 (Version None)
Quarter: 2008Q4

REPORT INFORMATION
  Report Type: 
  Country: None (occurrence: None)
  Receive Date: 20081219
  Receipt Date: 20081208
  Transmission Date: 20090506
  Serious: Yes (Hospitalization)
  Sender: FDA-Public Use
  Company Number: US-ROCHE-597947

PATIENT
  Sex: Male
  Weight: 149.7 kg

DRUGS (8)
  1. PEGASYS [Suspect]
     Dosage: STRENGTH REPORTED AS: 180 MCG/ 0.5 ML
     Route: 058
     Dates: start: 20080725, end: 20081114
  2. RIBAVIRIN [Suspect]
     Route: 048
     Dates: start: 20080725, end: 20081114
  3. LASIX [Concomitant]
     Indication: HYPERTENSION
     Dosage: FREQUENCY REPORTED AS: QD
     Route: 048
     Dates: end: 20081114
  4. LISINOPRIL [Concomitant]
     Indication: HYPERTENSION
     Dosage: FREQUENCY REPORTED AS: QD
     Route: 048
  5. ZETIA [Concomitant]
     Dosage: FREQUENCY REPORTED AS: QD
     Route: 048
  6. VERAPAMIL [Concomitant]
     Indication: HYPERTENSION
     Dosage: FREQUENCY REPORTED AS: QD
     Route: 048
  7. METFORMIN HCL [Concomitant]
     Route: 048
  8. SPIRONOLACTONE [Concomitant]
     Indication: HYPERTENSION
     Dosage: DRUG REPORTED AS: SPIROLACTONE
     Route: 048
     Dates: end: 20081114

REACTIONS (3)
  - ANAEMIA [None]
  - FATIGUE [None]
  - RENAL FAILURE [None]
